FAERS Safety Report 19039538 (Version 2)
Quarter: 2021Q2

REPORT INFORMATION
  Report Type: Spontaneous
  Country: US (occurrence: US)
  Receive Date: 20210322
  Receipt Date: 20210405
  Transmission Date: 20210717
  Serious: Yes (Hospitalization)
  Sender: FDA-Public Use
  Company Number: US-TAKEDA-2021TUS017107

PATIENT
  Age: 73 Year
  Sex: Male

DRUGS (2)
  1. ALUNBRIG [Suspect]
     Active Substance: BRIGATINIB
     Indication: LUNG CARCINOMA CELL TYPE UNSPECIFIED STAGE 0
  2. ALUNBRIG [Suspect]
     Active Substance: BRIGATINIB
     Indication: METASTASES TO LIVER
     Dosage: 90 MILLIGRAM, QD
     Route: 065
     Dates: start: 20210315, end: 20210317

REACTIONS (11)
  - Diarrhoea [Recovered/Resolved]
  - White blood cell count increased [Recovered/Resolved]
  - Hypotension [Recovered/Resolved]
  - Nausea [Recovered/Resolved]
  - Fatigue [Not Recovered/Not Resolved]
  - Dizziness [Recovered/Resolved]
  - Dehydration [Recovered/Resolved]
  - Vomiting [Recovered/Resolved]
  - Weight decreased [Recovered/Resolved]
  - Drug hypersensitivity [Unknown]
  - Polyuria [Unknown]

NARRATIVE: CASE EVENT DATE: 20210317
